FAERS Safety Report 7360678-X (Version None)
Quarter: 2011Q1

REPORT INFORMATION
  Report Type: 
  Country: None (occurrence: None)
  Receive Date: 20110318
  Receipt Date: 20091104
  Transmission Date: 20110831
  Serious: Yes (Other)
  Sender: FDA-Public Use
  Company Number: US-BAYER-200939269NA

PATIENT
  Sex: Male
  Weight: 95.238 kg

DRUGS (13)
  1. LASIX [Concomitant]
     Dosage: 40 MG, UNK
     Route: 042
     Dates: start: 20011103
  2. LEVAQUIN [Concomitant]
     Dosage: 500 MG, QD
     Dates: start: 20011103
  3. GENTAMICIN [Concomitant]
     Dosage: 1 MG, UNK
     Route: 042
     Dates: start: 20011105
  4. VANCOMYCIN HCL [Concomitant]
     Dosage: UNK
     Dates: start: 20011029
  5. ASPIRIN [Concomitant]
     Dosage: 325 MG, UNK
     Route: 048
     Dates: start: 20011103
  6. ZESTRIL [Concomitant]
     Dosage: 5 MG, UNK
     Route: 048
     Dates: start: 20011029
  7. UNASYN IM/IV [Concomitant]
     Dosage: 3 MG EVERY 6 HOURS
     Route: 042
     Dates: start: 20011105
  8. COREG [Concomitant]
     Dosage: 3.125, BID
     Route: 048
     Dates: start: 20011103
  9. LOPRESSOR [Concomitant]
     Dosage: 5 MG, UNK
     Route: 042
     Dates: start: 20011102
  10. HEPARIN [Concomitant]
     Dosage: UNK
     Dates: start: 20011103, end: 20011105
  11. TRASYLOL [Suspect]
     Indication: AORTIC VALVE REPLACEMENT
  12. PLAVIX [Concomitant]
     Dosage: 75 MG, QD
     Route: 048
     Dates: start: 20000717
  13. TRASYLOL [Suspect]
     Indication: CORONARY ARTERY BYPASS
     Dosage: INITIAL (TEST) DOSE: 1 ML
     Route: 042
     Dates: start: 20011106

REACTIONS (7)
  - EMOTIONAL DISTRESS [None]
  - RENAL FAILURE [None]
  - CEREBROVASCULAR ACCIDENT [None]
  - ANXIETY [None]
  - PARALYSIS [None]
  - PAIN [None]
  - INJURY [None]
